FAERS Safety Report 23494914 (Version 19)
Quarter: 2025Q3

REPORT INFORMATION
  Report Type: Report from Study
  Country: CA (occurrence: CA)
  Receive Date: 20240207
  Receipt Date: 20250922
  Transmission Date: 20251020
  Serious: Yes (Other)
  Sender: JOHNSON AND JOHNSON
  Company Number: CA-JNJFOC-20230106897

PATIENT
  Age: 45 Year
  Sex: Female
  Weight: 107 kg

DRUGS (21)
  1. REMICADE [Suspect]
     Active Substance: INFLIXIMAB
     Indication: Crohn^s disease
     Route: 041
     Dates: start: 20140819
  2. REMICADE [Suspect]
     Active Substance: INFLIXIMAB
     Route: 041
     Dates: start: 20220623
  3. REMICADE [Suspect]
     Active Substance: INFLIXIMAB
     Route: 041
     Dates: start: 20240220
  4. REMICADE [Suspect]
     Active Substance: INFLIXIMAB
     Route: 041
     Dates: start: 20220623
  5. REMICADE [Suspect]
     Active Substance: INFLIXIMAB
     Dosage: ANOTHER THERAPY START DATE- 15-SEP-2023.?BATCH NUMBER- 23A52,23A041.A,23A041.A (2) 23A122 (1) 23A052
     Route: 041
     Dates: start: 20140819
  6. REMICADE [Suspect]
     Active Substance: INFLIXIMAB
     Dosage: ANOTHER THERAPY START DATE- 15-SEP-2023.?BATCH NUMBER- 23A52,23A041.A,23A041.A (2) 23A122 (1) 23A052
     Route: 041
     Dates: start: 20140819
  7. REMICADE [Suspect]
     Active Substance: INFLIXIMAB
     Dosage: ANOTHER THERAPY START DATE- 15-SEP-2023.?BATCH NUMBER- 23A52,23A041.A,23A041.A (2) 23A122 (1) 23A052
     Route: 041
     Dates: start: 20140819
  8. REMICADE [Suspect]
     Active Substance: INFLIXIMAB
     Dosage: ANOTHER THERAPY START DATE- 15-SEP-2023.?BATCH NUMBER- 23A52,23A041.A,23A041.A (2) 23A122 (1) 23A052
     Route: 041
     Dates: start: 20140819
  9. REMICADE [Suspect]
     Active Substance: INFLIXIMAB
     Dosage: ANOTHER THERAPY START DATE- 15-SEP-2023.?BATCH NUMBER- 23A52,23A041.A,23A041.A (2) 23A122 (1) 23A052
     Route: 041
     Dates: start: 20140819
  10. REMICADE [Suspect]
     Active Substance: INFLIXIMAB
     Route: 041
     Dates: start: 20140819
  11. REMICADE [Suspect]
     Active Substance: INFLIXIMAB
     Route: 041
     Dates: start: 20220623
  12. REMICADE [Suspect]
     Active Substance: INFLIXIMAB
     Dosage: ANOTHER THERAPY START DATE- 15-SEP-2023.?BATCH NUMBER- 23A52,23A041.A,23A041.A (2) 23A122 (1) 23A052
     Route: 041
     Dates: start: 20140819
  13. REMICADE [Suspect]
     Active Substance: INFLIXIMAB
     Dosage: ANOTHER THERAPY START DATE- 15-SEP-2023.?BATCH NUMBER- 23A52,23A041.A,23A041.A (2) 23A122 (1) 23A052
     Route: 041
     Dates: start: 20140819
  14. REMICADE [Suspect]
     Active Substance: INFLIXIMAB
     Dosage: ANOTHER THERAPY START DATE- 15-SEP-2023.?BATCH NUMBER- 23A52,23A041.A,23A041.A (2) 23A122 (1) 23A052
     Route: 041
     Dates: start: 20140819
  15. REMICADE [Suspect]
     Active Substance: INFLIXIMAB
     Route: 041
     Dates: start: 20240819
  16. REMICADE [Suspect]
     Active Substance: INFLIXIMAB
     Route: 041
     Dates: start: 20250407
  17. REMICADE [Suspect]
     Active Substance: INFLIXIMAB
     Dosage: ANOTHER THERAPY START DATE- 15-SEP-2023.?BATCH NUMBER- 23A52,23A041.A,23A041.A (2) 23A122 (1) 23A052
     Route: 041
     Dates: start: 20140819
  18. REMICADE [Suspect]
     Active Substance: INFLIXIMAB
     Route: 041
  19. REMICADE [Suspect]
     Active Substance: INFLIXIMAB
     Route: 041
  20. REMICADE [Suspect]
     Active Substance: INFLIXIMAB
     Route: 041
  21. IRON [Suspect]
     Active Substance: IRON
     Indication: Blood iron decreased
     Route: 065
     Dates: start: 202407

REACTIONS (27)
  - Dyspnoea at rest [Recovering/Resolving]
  - Crohn^s disease [Not Recovered/Not Resolved]
  - Fatigue [Not Recovered/Not Resolved]
  - Abdominal pain [Recovering/Resolving]
  - Anaemia [Unknown]
  - Sinusitis [Recovered/Resolved]
  - Dyspepsia [Recovered/Resolved]
  - Influenza like illness [Recovered/Resolved]
  - Acne [Unknown]
  - Swelling [Unknown]
  - Inadequate diet [Unknown]
  - Fibromyalgia [Not Recovered/Not Resolved]
  - Haemorrhoidal haemorrhage [Not Recovered/Not Resolved]
  - Fluid retention [Recovering/Resolving]
  - Iron deficiency [Not Recovered/Not Resolved]
  - General physical health deterioration [Unknown]
  - Flatulence [Recovered/Resolved]
  - Weight decreased [Unknown]
  - Haemorrhoids [Not Recovered/Not Resolved]
  - Seasonal allergy [Unknown]
  - Alopecia [Not Recovered/Not Resolved]
  - Infusion related reaction [Recovered/Resolved]
  - Nausea [Recovered/Resolved]
  - Chest pain [Unknown]
  - Constipation [Unknown]
  - COVID-19 [Not Recovered/Not Resolved]
  - Therapeutic product effect decreased [Unknown]

NARRATIVE: CASE EVENT DATE: 20220101
